FAERS Safety Report 23062361 (Version 3)
Quarter: 2025Q1

REPORT INFORMATION
  Report Type: Spontaneous
  Country: US (occurrence: US)
  Receive Date: 20231013
  Receipt Date: 20250313
  Transmission Date: 20250409
  Serious: No
  Sender: PFIZER
  Company Number: US-PFIZER INC-PV202300169242

PATIENT
  Age: 69 Year
  Sex: Female

DRUGS (6)
  1. XELJANZ [Suspect]
     Active Substance: TOFACITINIB CITRATE
  2. METHOTREXATE [Concomitant]
     Active Substance: METHOTREXATE
  3. FOLIC ACID [Concomitant]
     Active Substance: FOLIC ACID
  4. CALCIUM [Concomitant]
     Active Substance: CALCIUM
  5. MYRBETRIQ [Concomitant]
     Active Substance: MIRABEGRON
  6. NAPROXEN [Concomitant]
     Active Substance: NAPROXEN

REACTIONS (1)
  - Mental disorder [Unknown]
